FAERS Safety Report 7827065-9 (Version None)
Quarter: 2011Q4

REPORT INFORMATION
  Report Type: 
  Country: None (occurrence: None)
  Receive Date: 20111020
  Receipt Date: 20111013
  Transmission Date: 20120403
  Serious: Yes (Death, Life-Threatening, Hospitalization, Other)
  Sender: FDA-Public Use
  Company Number: FR-ASTELLAS-2011EU006179

PATIENT
  Sex: Male
  Weight: 93 kg

DRUGS (10)
  1. COLIMYCINE [Concomitant]
     Indication: SEPTIC SHOCK
     Dosage: 5 MIU, TID
     Route: 042
     Dates: start: 20101020, end: 20101027
  2. TIENAM [Concomitant]
     Dosage: 1 G, TID
     Route: 042
     Dates: start: 20101020, end: 20101027
  3. AMPHOTERICIN B [Concomitant]
     Indication: RESPIRATORY DISORDER
     Dosage: 3 MG, UNKNOWN/D
     Route: 007
     Dates: start: 20101107, end: 20101217
  4. FUNGIZONE [Concomitant]
     Indication: RESPIRATORY DISORDER
     Dosage: 9 ML, UNKNOWN/D
     Route: 048
     Dates: start: 20101021, end: 20101203
  5. TIENAM [Concomitant]
     Indication: SEPTIC SHOCK
     Dosage: 3 G, UNKNOWN/D
     Route: 042
     Dates: start: 20101108, end: 20101109
  6. NOREPINEPHRINE BITARTRATE [Concomitant]
     Indication: SEPTIC SHOCK
     Dosage: 0.9 UNK, UNKNOWN/D
     Route: 042
     Dates: start: 20101108, end: 20101110
  7. ZYVOX [Concomitant]
     Indication: SEPTIC SHOCK
     Dosage: 1.2 G, UNKNOWN/D
     Route: 042
     Dates: start: 20101108, end: 20101109
  8. VANCOMYCIN [Concomitant]
     Indication: SEPTIC SHOCK
     Dosage: 1.5 G, UNKNOWN/D
     Route: 042
     Dates: start: 20101019, end: 20101027
  9. MICAFUNGIN INJECTION [Suspect]
     Indication: ANTIFUNGAL PROPHYLAXIS
     Dosage: 100 MG, UNKNOWN/D
     Route: 042
     Dates: start: 20101020, end: 20101108
  10. FOSFOMYCIN [Concomitant]
     Indication: SEPTIC SHOCK
     Dosage: 4 G, QID
     Route: 042
     Dates: start: 20101010, end: 20101027

REACTIONS (3)
  - CANDIDIASIS [None]
  - DRUG INEFFECTIVE [None]
  - MULTI-ORGAN FAILURE [None]
